FAERS Safety Report 10172929 (Version 1)
Quarter: 2014Q2

REPORT INFORMATION
  Report Type: Spontaneous
  Country: US (occurrence: None)
  Receive Date: 20140514
  Receipt Date: 20140514
  Transmission Date: 20141212
  Serious: No
  Sender: FDA-Public Use
  Company Number: None

PATIENT
  Age: 48 Year
  Sex: Female

DRUGS (11)
  1. TECFIDERA [Suspect]
     Indication: MULTIPLE SCLEROSIS
     Dosage: 120MG BID X7 DAYS THEN 240 MG BID
     Route: 048
     Dates: start: 20140506, end: 20140513
  2. DULOXETINE [Concomitant]
  3. BACLOFEN [Concomitant]
  4. LETROZOLE [Concomitant]
  5. CLONAZEPAM [Concomitant]
  6. ZOLPIDEM [Concomitant]
  7. MONTELUKAST SODIUM [Concomitant]
  8. GABAPENTIN [Concomitant]
  9. NUVIGIL [Concomitant]
  10. NASONEX [Concomitant]
  11. ABILIFV [Concomitant]

REACTIONS (2)
  - Peripheral swelling [None]
  - Joint swelling [None]
